FAERS Safety Report 20468190 (Version 1)
Quarter: 2022Q1

REPORT INFORMATION
  Report Type: Other
  Country: None (occurrence: FR)
  Receive Date: 20220214
  Receipt Date: 20220214
  Transmission Date: 20220423
  Serious: Yes (Other)
  Sender: FDA-Public Use
  Company Number: FR-Ajanta Pharma USA Inc.-2125857

PATIENT
  Age: 15 Year
  Sex: Male

DRUGS (4)
  1. VORICONAZOLE [Suspect]
     Active Substance: VORICONAZOLE
     Indication: Aspergillus infection
  2. ETHAMBUTOL [Suspect]
     Active Substance: ETHAMBUTOL HYDROCHLORIDE
  3. TACROLIMUS [Concomitant]
     Active Substance: TACROLIMUS
  4. CORTISONE ACETATE [Concomitant]
     Active Substance: CORTISONE ACETATE

REACTIONS (3)
  - Toxic optic neuropathy [Recovered/Resolved]
  - Neuropathy peripheral [Recovered/Resolved]
  - Drug interaction [Recovered/Resolved]
